FAERS Safety Report 9129185 (Version 1)
Quarter: 2013Q1

REPORT INFORMATION
  Report Type: Spontaneous
  Country: GB (occurrence: GB)
  Receive Date: 20130228
  Receipt Date: 20130228
  Transmission Date: 20140127
  Serious: Yes (Other)
  Sender: FDA-Public Use
  Company Number: GB-ASTRAZENECA-2013SE11835

PATIENT
  Age: 41 Year
  Sex: Male

DRUGS (4)
  1. SEROQUEL XL [Suspect]
     Indication: DEPRESSION
     Route: 048
     Dates: start: 2011
  2. SEROQUEL XL [Suspect]
     Indication: OBSESSIVE-COMPULSIVE DISORDER
     Route: 048
     Dates: start: 2011
  3. SEROQUEL XL [Suspect]
     Indication: DEPRESSION
     Route: 048
  4. SEROQUEL XL [Suspect]
     Indication: OBSESSIVE-COMPULSIVE DISORDER
     Route: 048

REACTIONS (11)
  - Glucose tolerance impaired [Unknown]
  - Metabolic syndrome [Unknown]
  - Sedation [Unknown]
  - Weight increased [Unknown]
  - Blood cholesterol increased [Unknown]
  - Parkinsonism [Unknown]
  - Nervous system disorder [Unknown]
  - Fear [Unknown]
  - Dizziness [Unknown]
  - Akathisia [Unknown]
  - Off label use [Unknown]
